FAERS Safety Report 6386470-0 (Version None)
Quarter: 2009Q4

REPORT INFORMATION
  Report Type: 
  Country: None (occurrence: None)
  Receive Date: 20091002
  Receipt Date: 20090626
  Transmission Date: 20100525
  Serious: No
  Sender: FDA-Public Use
  Company Number: US-ASTRAZENECA-2009UW13989

PATIENT
  Age: 56 Year
  Sex: Female
  Weight: 99.8 kg

DRUGS (5)
  1. ARIMIDEX [Suspect]
     Indication: BREAST CANCER
     Route: 048
     Dates: start: 20080101
  2. ZOCOR [Concomitant]
  3. VITAMINS [Concomitant]
  4. TAMOXIFEN CITRATE [Concomitant]
  5. ESTRADIOL [Concomitant]

REACTIONS (4)
  - ARTHRALGIA [None]
  - DRUG INEFFECTIVE [None]
  - OESTRADIOL ABNORMAL [None]
  - VULVOVAGINAL DRYNESS [None]
